FAERS Safety Report 10148955 (Version 2)
Quarter: 2014Q2

REPORT INFORMATION
  Report Type: Spontaneous
  Country: US (occurrence: US)
  Receive Date: 20140502
  Receipt Date: 20140502
  Transmission Date: 20141212
  Serious: Yes (Other)
  Sender: FDA-Public Use
  Company Number: US-ROCHE-1348286

PATIENT
  Sex: Female

DRUGS (5)
  1. TARCEVA [Suspect]
     Indication: LUNG NEOPLASM MALIGNANT
     Dosage: DAILY
     Route: 048
     Dates: start: 20140123
  2. TARCEVA [Suspect]
     Dosage: DAILY
     Route: 048
     Dates: start: 20140220
  3. AVASTIN [Suspect]
     Indication: LUNG NEOPLASM MALIGNANT
     Route: 065
  4. OMEPRAZOLE MAGNESIUM [Concomitant]
  5. GLUCOSAMINE CHONDROITIN COMPLEX [Concomitant]

REACTIONS (5)
  - Lung neoplasm [Unknown]
  - Therapeutic product ineffective [Unknown]
  - Diarrhoea [Unknown]
  - Dry skin [Unknown]
  - Disease progression [Unknown]
